FAERS Safety Report 4283015-6 (Version None)
Quarter: 2004Q1

REPORT INFORMATION
  Report Type: 
  Country: None (occurrence: None)
  Receive Date: 20040130
  Receipt Date: 20031120
  Transmission Date: 20041129
  Serious: Yes (Hospitalization)
  Sender: FDA-Public Use
  Company Number: WAES 0311GBR00200

PATIENT
  Age: 83 Year
  Sex: Female

DRUGS (3)
  1. ASPIRIN [Concomitant]
     Indication: CEREBROVASCULAR ACCIDENT PROPHYLAXIS
     Route: 048
     Dates: start: 20030801, end: 20031104
  2. ATENOLOL AND CHLORTHALIDONE [Concomitant]
     Indication: HYPERTENSION
     Route: 048
  3. VIOXX [Suspect]
     Indication: PAIN
     Route: 048
     Dates: start: 20030501, end: 20031104

REACTIONS (5)
  - DUODENAL ULCER HAEMORRHAGE [None]
  - GASTRITIS [None]
  - GASTRITIS EROSIVE [None]
  - HAEMATEMESIS [None]
  - MELAENA [None]
